FAERS Safety Report 15994810 (Version 1)
Quarter: 2019Q1

REPORT INFORMATION
  Report Type: Report from Study
  Country: EG (occurrence: EG)
  Receive Date: 20190222
  Receipt Date: 20190222
  Transmission Date: 20190418
  Serious: Yes (Hospitalization, Other)
  Sender: FDA-Public Use
  Company Number: PHHY2019EG037864

PATIENT
  Age: 33 Year
  Sex: Male

DRUGS (2)
  1. IMATINIB. [Suspect]
     Active Substance: IMATINIB MESYLATE
     Indication: PRODUCT USED FOR UNKNOWN INDICATION
     Route: 065
  2. GLIVEC [Suspect]
     Active Substance: IMATINIB MESYLATE
     Indication: CHRONIC MYELOID LEUKAEMIA
     Dosage: 400 MG, (EVERY 2 DAYS)
     Route: 048
     Dates: start: 20161015

REACTIONS (14)
  - Platelet count decreased [Recovering/Resolving]
  - Gastritis [Not Recovered/Not Resolved]
  - Bone marrow failure [Unknown]
  - Influenza [Unknown]
  - Dyspnoea exertional [Recovering/Resolving]
  - Internal haemorrhage [Recovering/Resolving]
  - Anaemia [Recovering/Resolving]
  - Ecchymosis [Recovering/Resolving]
  - Dyspnoea [Recovering/Resolving]
  - Dizziness [Recovering/Resolving]
  - Pyrexia [Unknown]
  - Splenomegaly [Recovering/Resolving]
  - Dyskinesia [Recovering/Resolving]
  - Gastrooesophageal reflux disease [Not Recovered/Not Resolved]

NARRATIVE: CASE EVENT DATE: 2018
